FAERS Safety Report 23058180 (Version 1)
Quarter: 2023Q4

REPORT INFORMATION
  Report Type: Spontaneous
  Country: GB (occurrence: GB)
  Receive Date: 20231012
  Receipt Date: 20231012
  Transmission Date: 20240110
  Serious: Yes (Disabling)
  Sender: FDA-Public Use
  Company Number: None

PATIENT
  Age: 25 Year
  Sex: Female

DRUGS (2)
  1. TACROLIMUS [Suspect]
     Active Substance: TACROLIMUS
     Indication: Eczema
     Route: 061
     Dates: start: 201902, end: 20210509
  2. CLOBETASOL [Suspect]
     Active Substance: CLOBETASOL
     Indication: Eczema
     Route: 061

REACTIONS (7)
  - Topical steroid withdrawal reaction [Not Recovered/Not Resolved]
  - Skin infection [Unknown]
  - Hypersensitivity [Unknown]
  - Erythema [Unknown]
  - Skin exfoliation [Unknown]
  - Skin weeping [Unknown]
  - Insomnia [Unknown]

NARRATIVE: CASE EVENT DATE: 20210510
